FAERS Safety Report 5651618-X (Version None)
Quarter: 2008Q1

REPORT INFORMATION
  Report Type: 
  Country: None (occurrence: None)
  Receive Date: 20080305
  Receipt Date: 20080226
  Transmission Date: 20080703
  Serious: Yes (Other)
  Sender: FDA-Public Use
  Company Number: VE-AVENTIS-200720811GDDC

PATIENT
  Age: 29 Year
  Sex: Female

DRUGS (2)
  1. ARAVA [Suspect]
     Indication: RHEUMATOID ARTHRITIS
     Route: 048
     Dates: start: 20070912, end: 20070919
  2. RITUXIMAB [Concomitant]
     Indication: RHEUMATOID ARTHRITIS
     Route: 042
     Dates: start: 20070701, end: 20070701

REACTIONS (9)
  - DRUG EXPOSURE DURING PREGNANCY [None]
  - FEELING OF BODY TEMPERATURE CHANGE [None]
  - GASTRITIS [None]
  - MEDICATION ERROR [None]
  - NAUSEA [None]
  - PAIN [None]
  - THROMBOSIS [None]
  - VASCULITIS [None]
  - VOMITING [None]
